FAERS Safety Report 12901437 (Version 2)
Quarter: 2016Q4

REPORT INFORMATION
  Report Type: Spontaneous
  Country: JP (occurrence: JP)
  Receive Date: 20161101
  Receipt Date: 20161223
  Transmission Date: 20170207
  Serious: Yes (Hospitalization)
  Sender: FDA-Public Use
  Company Number: JP-ROCHE-1848143

PATIENT
  Age: 67 Year
  Sex: Male

DRUGS (6)
  1. THEOPHYLLINE [Concomitant]
     Active Substance: THEOPHYLLINE ANHYDROUS
     Indication: ASTHMA
     Route: 065
  2. XOLAIR [Suspect]
     Active Substance: OMALIZUMAB
     Indication: ASTHMA
     Route: 058
  3. PREDNISOLONE. [Concomitant]
     Active Substance: PREDNISOLONE
     Indication: ASTHMA
     Route: 048
  4. SYMBICORT [Concomitant]
     Active Substance: BUDESONIDE\FORMOTEROL FUMARATE DIHYDRATE
     Indication: ASTHMA
     Route: 055
  5. TIOTROPIUM [Concomitant]
     Active Substance: TIOTROPIUM
     Indication: ASTHMA
     Route: 065
  6. MONTELUKAST [Concomitant]
     Active Substance: MONTELUKAST SODIUM
     Indication: ASTHMA
     Dosage: 10 MG, QD
     Route: 065

REACTIONS (10)
  - Atelectasis [Recovered/Resolved]
  - Procedural pain [Unknown]
  - Wheezing [Unknown]
  - Asthma [Recovering/Resolving]
  - Forced vital capacity decreased [Unknown]
  - Lung infiltration [Recovered/Resolved]
  - Drug ineffective [Unknown]
  - Forced expiratory volume decreased [Unknown]
  - Feeling abnormal [Unknown]
  - Bronchitis [Unknown]
